FAERS Safety Report 4401008-2 (Version None)
Quarter: 2004Q3

REPORT INFORMATION
  Report Type: 
  Country: None (occurrence: None)
  Receive Date: 20040907
  Receipt Date: 20030917
  Transmission Date: 20050211
  Serious: No
  Sender: FDA-Public Use
  Company Number: US-BRISTOL-MYERS SQUIBB COMPANY-12386629

PATIENT
  Age: 74 Year
  Sex: Female
  Weight: 63 kg

DRUGS (7)
  1. WARFARIN SODIUM [Suspect]
     Dosage: ONE 5 MG TAB 5X/WEEK AND 1/2 TAB (2.5 MG) 2 DAYS/WEEK.
     Route: 048
  2. TOPROL-XL [Concomitant]
  3. POTASSIUM [Concomitant]
  4. LASIX [Concomitant]
  5. PROTONIX [Concomitant]
  6. SYNTHROID [Concomitant]
     Dosage: TAKEN FOR A LONG TIME
  7. TIAZAC [Concomitant]

REACTIONS (2)
  - JOINT SWELLING [None]
  - PAIN IN EXTREMITY [None]
